FAERS Safety Report 8902826 (Version 1)
Quarter: 2012Q4

REPORT INFORMATION
  Report Type: 
  Country: JP (occurrence: JP)
  Receive Date: 20121112
  Receipt Date: 20121112
  Transmission Date: 20130627
  Serious: Yes (Other)
  Sender: FDA-Public Use
  Company Number: JP-BAYER-2012-114655

PATIENT
  Age: 78 Year
  Sex: Male

DRUGS (7)
  1. BAYASPIRIN [Suspect]
     Route: 048
  2. DORNER [Suspect]
     Route: 048
  3. FUROSEMIDE [Suspect]
     Route: 048
  4. KALGUT [Suspect]
     Route: 048
  5. ARTIST [Suspect]
     Dosage: UNK
     Route: 048
  6. VOGLIBOSE [Suspect]
     Route: 048
  7. MITIGLINIDE [Suspect]
     Dosage: UNK
     Route: 048

REACTIONS (7)
  - Urethral haemorrhage [None]
  - Urinary retention [None]
  - Dysuria [None]
  - Haemoglobin decreased [None]
  - Blood creatinine increased [None]
  - Blood glucose increased [None]
  - Renal atrophy [None]
